FAERS Safety Report 8073120-0 (Version None)
Quarter: 2012Q1

REPORT INFORMATION
  Report Type: 
  Country: None (occurrence: None)
  Receive Date: 20120126
  Receipt Date: 20120111
  Transmission Date: 20120608
  Serious: Yes (Hospitalization)
  Sender: FDA-Public Use
  Company Number: CA-JNJFOC-20120110814

PATIENT
  Sex: Male
  Weight: 88 kg

DRUGS (1)
  1. REMICADE [Suspect]
     Indication: PSORIASIS
     Route: 042
     Dates: start: 20100114

REACTIONS (1)
  - TENDON RUPTURE [None]
